FAERS Safety Report 14511964 (Version 1)
Quarter: 2018Q1

REPORT INFORMATION
  Report Type: Report from Study
  Country: US (occurrence: US)
  Receive Date: 20180209
  Receipt Date: 20180209
  Transmission Date: 20180509
  Serious: Yes (Other)
  Sender: FDA-Public Use
  Company Number: US-JNJFOC-20160411479

PATIENT
  Age: 67 Year
  Sex: Male
  Weight: 49 kg

DRUGS (7)
  1. IMBRUVICA [Suspect]
     Active Substance: IBRUTINIB
     Indication: WALDENSTROM^S MACROGLOBULINAEMIA
     Route: 048
     Dates: start: 20170919
  2. OMEPRAZOLE. [Concomitant]
     Active Substance: OMEPRAZOLE
  3. IMBRUVICA [Suspect]
     Active Substance: IBRUTINIB
     Indication: WALDENSTROM^S MACROGLOBULINAEMIA
     Route: 048
     Dates: start: 20160210
  4. IMBRUVICA [Suspect]
     Active Substance: IBRUTINIB
     Indication: WALDENSTROM^S MACROGLOBULINAEMIA
     Route: 048
     Dates: start: 201603, end: 201708
  5. DILANTIN [Concomitant]
     Active Substance: PHENYTOIN
  6. IMBRUVICA [Suspect]
     Active Substance: IBRUTINIB
     Indication: WALDENSTROM^S MACROGLOBULINAEMIA
     Route: 048
     Dates: start: 20170821
  7. KEPPRA [Concomitant]
     Active Substance: LEVETIRACETAM

REACTIONS (25)
  - Lung infection [Unknown]
  - Incorrect dose administered [Unknown]
  - Tooth extraction [Recovered/Resolved]
  - Frequent bowel movements [Unknown]
  - Nausea [Not Recovered/Not Resolved]
  - Headache [Unknown]
  - Weight increased [Unknown]
  - Off label use [Unknown]
  - Haematochezia [Unknown]
  - Hunger [Unknown]
  - Blood iron decreased [Recovered/Resolved]
  - Hypermetabolism [Unknown]
  - Cough [Unknown]
  - Pulmonary congestion [Unknown]
  - Blood immunoglobulin G decreased [Unknown]
  - Vitamin D decreased [Unknown]
  - Sleep disorder [Unknown]
  - Dysuria [Unknown]
  - Dizziness [Unknown]
  - Blood immunoglobulin M decreased [Not Recovered/Not Resolved]
  - Pain [Unknown]
  - Vomiting [Unknown]
  - Loss of consciousness [Unknown]
  - Contusion [Not Recovered/Not Resolved]
  - Asthenia [Unknown]

NARRATIVE: CASE EVENT DATE: 2016
